FAERS Safety Report 14946968 (Version 1)
Quarter: 2018Q2

REPORT INFORMATION
  Report Type: Spontaneous
  Country: FR (occurrence: FR)
  Receive Date: 20180529
  Receipt Date: 20180529
  Transmission Date: 20180711
  Serious: Yes (Other)
  Sender: FDA-Public Use
  Company Number: FR-MERCK KGAA-2048580

PATIENT
  Age: 51 Year
  Sex: Female

DRUGS (1)
  1. NOVOTHYROX [Suspect]
     Active Substance: LEVOTHYROXINE SODIUM
     Indication: PRODUCT USED FOR UNKNOWN INDICATION

REACTIONS (16)
  - Malaise [None]
  - Social avoidant behaviour [None]
  - Thyroxine decreased [None]
  - Blood thyroid stimulating hormone increased [None]
  - Headache [None]
  - Irritability [None]
  - Vertigo [None]
  - Dysstasia [None]
  - Aspartate aminotransferase increased [None]
  - Weight increased [None]
  - Loss of personal independence in daily activities [None]
  - Impaired work ability [None]
  - Tri-iodothyronine decreased [None]
  - Alopecia [None]
  - General physical condition abnormal [None]
  - Insomnia [None]

NARRATIVE: CASE EVENT DATE: 20170510
